FAERS Safety Report 26099563 (Version 2)
Quarter: 2025Q4

REPORT INFORMATION
  Report Type: Spontaneous
  Country: JO (occurrence: JO)
  Receive Date: 20251128
  Receipt Date: 20251209
  Transmission Date: 20260118
  Serious: Yes (Other)
  Sender: NOVARTIS
  Company Number: JO-002147023-NVSC2025JO166256

PATIENT
  Age: 20 Year
  Sex: Male

DRUGS (2)
  1. ELTROMBOPAG OLAMINE [Suspect]
     Active Substance: ELTROMBOPAG OLAMINE
     Indication: Thrombocytopenia
     Dosage: 25 MG, TID (NG TUBE) 1*3 AT 8 AM ON AN EMPTY STOMACH
     Route: 065
     Dates: start: 20251014
  2. DIETARY SUPPLEMENT [Concomitant]
     Active Substance: DIETARY SUPPLEMENT
     Indication: Product used for unknown indication
     Dosage: UNK (NG TUBE)
     Route: 065

REACTIONS (3)
  - Drug interaction [Recovered/Resolved]
  - Therapy non-responder [Recovering/Resolving]
  - Haemorrhage [Unknown]

NARRATIVE: CASE EVENT DATE: 20251014
